FAERS Safety Report 21950021 (Version 1)
Quarter: 2023Q1

REPORT INFORMATION
  Report Type: Spontaneous
  Country: US (occurrence: None)
  Receive Date: 20230202
  Receipt Date: 20230202
  Transmission Date: 20230417
  Serious: Yes (Death)
  Sender: FDA-Public Use
  Company Number: None

PATIENT
  Age: 62 Year
  Sex: Male

DRUGS (2)
  1. MYCOPHENOLIC ACID [Suspect]
     Active Substance: MYCOPHENOLIC ACID
     Dosage: FREQUENCY : TWICE A DAY;?
     Route: 048
     Dates: start: 20210806, end: 20230131
  2. LOKELMA [Suspect]
     Active Substance: SODIUM ZIRCONIUM CYCLOSILICATE
     Dosage: OTHER QUANTITY : 1 PACKET;?FREQUENCY : 3 TIMES A WEEK;?
     Route: 048
     Dates: start: 20221219, end: 20230131

REACTIONS (1)
  - Death [None]

NARRATIVE: CASE EVENT DATE: 20230131
